FAERS Safety Report 4662327-8 (Version None)
Quarter: 2005Q2

REPORT INFORMATION
  Report Type: 
  Country: None (occurrence: None)
  Receive Date: 20050516
  Receipt Date: 20050504
  Transmission Date: 20051028
  Serious: Yes (Other)
  Sender: FDA-Public Use
  Company Number: US-BOEHRINGER INGELHEIM PHARMACEUTICALS, INC.-2005-DE-01700GD

PATIENT
  Age: 8 Year

DRUGS (4)
  1. NEVIRAPINE [Suspect]
     Indication: HIV INFECTION
  2. STAVUDINE [Suspect]
     Indication: HIV INFECTION
  3. SAQUINAVIR [Suspect]
     Indication: HIV INFECTION
  4. AMPRENAVIR [Suspect]
     Indication: HIV INFECTION

REACTIONS (1)
  - PNEUMONIA [None]
